FAERS Safety Report 4798265-X (Version None)
Quarter: 2005Q4

REPORT INFORMATION
  Report Type: 
  Country: None (occurrence: None)
  Receive Date: 20051011
  Receipt Date: 20051011
  Transmission Date: 20060501
  Serious: Yes (Life-Threatening, Other)
  Sender: FDA-Public Use
  Company Number: None

PATIENT
  Age: 53 Year
  Sex: Female
  Weight: 64.8644 kg

DRUGS (4)
  1. CYMBALTA [Suspect]
     Indication: ANXIETY
     Dosage: 1 DAILY PO
     Route: 048
  2. CYMBALTA [Suspect]
     Indication: PAIN
     Dosage: 1 DAILY PO
     Route: 048
  3. CYMBALTA [Suspect]
     Indication: ANXIETY
     Dosage: 1 DAILY PO
     Route: 048
  4. CYMBALTA [Suspect]
     Indication: PAIN
     Dosage: 1 DAILY PO
     Route: 048

REACTIONS (11)
  - ANGER [None]
  - ANXIETY [None]
  - CEREBRAL DISORDER [None]
  - CONDITION AGGRAVATED [None]
  - DRUG WITHDRAWAL SYNDROME [None]
  - MARITAL PROBLEM [None]
  - MOTOR DYSFUNCTION [None]
  - NIGHTMARE [None]
  - PANIC DISORDER [None]
  - REACTION TO PRESERVATIVES [None]
  - SUICIDAL IDEATION [None]
